FAERS Safety Report 21595173 (Version 4)
Quarter: 2022Q4

REPORT INFORMATION
  Report Type: Report from Study
  Country: DE (occurrence: DE)
  Receive Date: 20221115
  Receipt Date: 20221209
  Transmission Date: 20230113
  Serious: Yes (Hospitalization)
  Sender: FDA-Public Use
  Company Number: DE-BRISTOL-MYERS SQUIBB COMPANY-2022-137465

PATIENT
  Age: 80 Year
  Sex: Male

DRUGS (10)
  1. NIVOLUMAB [Suspect]
     Active Substance: NIVOLUMAB
     Indication: Non-Hodgkin^s lymphoma
     Dosage: 1X/CYCLE
     Route: 042
     Dates: start: 20210921, end: 20220819
  2. RITUXIMAB [Suspect]
     Active Substance: RITUXIMAB
     Indication: Non-Hodgkin^s lymphoma
     Dosage: 1X/CYCLE
     Route: 042
     Dates: start: 20210922, end: 20220113
  3. OXALIPLATIN [Suspect]
     Active Substance: OXALIPLATIN
     Indication: Non-Hodgkin^s lymphoma
     Dosage: 1X/CYCLE
     Route: 042
     Dates: start: 20210923, end: 20210923
  4. GEMCITABINE HYDROCHLORIDE [Suspect]
     Active Substance: GEMCITABINE HYDROCHLORIDE
     Indication: Non-Hodgkin^s lymphoma
     Dosage: 1X/CYCLE
     Route: 042
     Dates: start: 20210923, end: 20220113
  5. PEGFILGRASTIM [Suspect]
     Active Substance: PEGFILGRASTIM
     Indication: Non-Hodgkin^s lymphoma
     Dosage: 1X/CYCLE
     Route: 058
     Dates: start: 20211205, end: 20220116
  6. BUDESONIDE [Concomitant]
     Active Substance: BUDESONIDE
     Indication: Colitis
     Dosage: 3X/DAY
     Route: 048
  7. COTRIMOXAZOLE [Concomitant]
     Active Substance: SULFAMETHOXAZOLE\TRIMETHOPRIM
     Indication: Infection prophylaxis
     Dosage: 3X/WEEK
     Route: 048
  8. ACYCLOVIR [Concomitant]
     Active Substance: ACYCLOVIR
     Indication: Prophylaxis
     Dosage: 1/2 - 1/2/ DAY
     Route: 048
  9. BISOPROLOL [Concomitant]
     Active Substance: BISOPROLOL
     Indication: Hypertension
     Dosage: 2X/DAY
     Route: 048
  10. LEVOTHYROXINE SODIUM [Concomitant]
     Active Substance: LEVOTHYROXINE SODIUM
     Indication: Hypothyroidism
     Route: 048

REACTIONS (1)
  - COVID-19 [Recovering/Resolving]

NARRATIVE: CASE EVENT DATE: 20221111
